FAERS Safety Report 6521977-4 (Version None)
Quarter: 2009Q4

REPORT INFORMATION
  Report Type: 
  Country: None (occurrence: None)
  Receive Date: 20091230
  Receipt Date: 20091223
  Transmission Date: 20100525
  Serious: Yes (Other)
  Sender: FDA-Public Use
  Company Number: TR-TEVA-218956ISR

PATIENT
  Age: 59 Year
  Sex: Male

DRUGS (4)
  1. CISPLATIN [Suspect]
     Route: 042
  2. POTASSIUM [Concomitant]
     Route: 042
  3. MAGNESIUM [Concomitant]
     Route: 042
  4. CYANOCOBALAMIN [Concomitant]
     Route: 030

REACTIONS (2)
  - ABDOMINAL PAIN [None]
  - RESPIRATORY FAILURE [None]
